FAERS Safety Report 8132299-2 (Version None)
Quarter: 2012Q1

REPORT INFORMATION
  Report Type: 
  Country: None (occurrence: None)
  Receive Date: 20120103
  Receipt Date: 20110926
  Transmission Date: 20120608
  Serious: No
  Sender: FDA-Public Use
  Company Number: AE-2011-001613

PATIENT
  Age: 61 Year
  Sex: Male
  Weight: 87.5442 kg

DRUGS (8)
  1. PEGINTERFERON (PEGINTERFERON ALFA-2A) [Concomitant]
  2. CYMBALTA [Concomitant]
  3. RIBAVIRIN [Concomitant]
  4. PRILOSEC [Concomitant]
  5. FLOMAX [Concomitant]
  6. INCIVEK [Suspect]
     Dosage: 2250 MG (750 MG, 1 IN 8 HR),ORAL
     Route: 048
     Dates: start: 20110915
  7. REMERON [Concomitant]
  8. DIAZEPAM [Concomitant]

REACTIONS (5)
  - PYREXIA [None]
  - DIZZINESS [None]
  - INSOMNIA [None]
  - HEADACHE [None]
  - INFLUENZA LIKE ILLNESS [None]
